FAERS Safety Report 16424751 (Version 2)
Quarter: 2019Q2

REPORT INFORMATION
  Report Type: Spontaneous
  Country: GB (occurrence: GB)
  Receive Date: 20190613
  Receipt Date: 20190621
  Transmission Date: 20190711
  Serious: Yes (Other)
  Sender: FDA-Public Use
  Company Number: GB-PFIZER INC-2019244872

PATIENT
  Age: 39 Year
  Sex: Male
  Weight: 65 kg

DRUGS (1)
  1. FLUCONAZOLE. [Suspect]
     Active Substance: FLUCONAZOLE
     Indication: RASH
     Dosage: 50 MG, UNK
     Route: 048
     Dates: start: 20190405, end: 20190409

REACTIONS (5)
  - Rash [Unknown]
  - Off label use [Unknown]
  - Blister [Recovered/Resolved]
  - Drug ineffective for unapproved indication [Unknown]
  - Pain in extremity [Recovered/Resolved]

NARRATIVE: CASE EVENT DATE: 20190407
